FAERS Safety Report 5759219-X (Version None)
Quarter: 2008Q2

REPORT INFORMATION
  Report Type: 
  Country: None (occurrence: None)
  Receive Date: 20080604
  Receipt Date: 20080523
  Transmission Date: 20081010
  Serious: Yes (Other)
  Sender: FDA-Public Use
  Company Number: US-PFIZER INC-2008044819

PATIENT
  Sex: Female

DRUGS (3)
  1. DILANTIN [Suspect]
     Indication: CONVULSION
     Dosage: DAILY DOSE:300MG
  2. PHENYTOIN [Suspect]
     Indication: CONVULSION
  3. ZOLOFT [Concomitant]

REACTIONS (5)
  - ANTICONVULSANT DRUG LEVEL DECREASED [None]
  - ENDODONTIC PROCEDURE [None]
  - GINGIVAL DISORDER [None]
  - GINGIVAL SWELLING [None]
  - ORTHODONTIC APPLIANCE COMPLICATION [None]
